FAERS Safety Report 13655591 (Version 2)
Quarter: 2017Q2

REPORT INFORMATION
  Report Type: Spontaneous
  Country: GR (occurrence: GR)
  Receive Date: 20170615
  Receipt Date: 20170627
  Transmission Date: 20170830
  Serious: Yes (Other)
  Sender: FDA-Public Use
  Company Number: GR-PFIZER INC-2017253330

PATIENT
  Age: 13 Year
  Sex: Female
  Weight: 30 kg

DRUGS (2)
  1. GENOTROPIN [Suspect]
     Active Substance: SOMATROPIN
     Indication: GROWTH HORMONE DEFICIENCY
     Dosage: 6.5 MG, CYCLIC (7 DAYS)
     Dates: start: 201509, end: 201511
  2. PREZOLON [Interacting]
     Active Substance: PREDNISOLONE
     Indication: HYPOALBUMINAEMIA
     Dosage: UNK

REACTIONS (3)
  - Nephrotic syndrome [Unknown]
  - Disease recurrence [Unknown]
  - Drug interaction [Unknown]

NARRATIVE: CASE EVENT DATE: 201511
